FAERS Safety Report 7170813-4 (Version None)
Quarter: 2010Q4

REPORT INFORMATION
  Report Type: 
  Country: None (occurrence: None)
  Receive Date: 20101217
  Receipt Date: 20101208
  Transmission Date: 20110411
  Serious: Yes (Hospitalization)
  Sender: FDA-Public Use
  Company Number: US-ELI_LILLY_AND_COMPANY-US201012003429

PATIENT
  Sex: Male
  Weight: 100 kg

DRUGS (9)
  1. PRASUGREL HYDROCHLORIDE [Suspect]
     Indication: ACUTE CORONARY SYNDROME
     Dosage: 10 MG, DAILY (1/D)
     Route: 065
     Dates: start: 20101102
  2. ASPIRIN [Concomitant]
     Indication: ANTIPLATELET THERAPY
     Dosage: 325 MG, DAILY (1/D)
     Route: 048
  3. COREG CR [Concomitant]
     Indication: HYPERTENSION
     Dosage: 80 MG, DAILY (1/D)
     Route: 048
  4. AMARYL [Concomitant]
     Indication: DIABETES MELLITUS
     Dosage: 4 MG, 4/D
     Route: 048
  5. LASIX [Concomitant]
     Indication: DIURETIC THERAPY
     Dosage: 20 MG, DAILY (1/D)
     Route: 048
  6. LIPITOR [Concomitant]
     Indication: HYPERLIPIDAEMIA
     Dosage: 80 MG, DAILY (1/D)
     Route: 048
  7. ZETIA [Concomitant]
     Indication: HYPERLIPIDAEMIA
     Dosage: 10 MG, DAILY (1/D)
     Route: 048
  8. LOVAZA [Concomitant]
     Indication: HYPERLIPIDAEMIA
     Dosage: 1 G, DAILY (1/D)
     Route: 048
  9. CARDIZEM [Concomitant]
     Indication: HYPERTENSION
     Dosage: 180 MG, DAILY (1/D)
     Route: 048

REACTIONS (1)
  - CARDIAC FAILURE CONGESTIVE [None]
